FAERS Safety Report 5156406-9 (Version None)
Quarter: 2006Q4

REPORT INFORMATION
  Report Type: 
  Country: None (occurrence: None)
  Receive Date: 20061122
  Receipt Date: 20061115
  Transmission Date: 20070319
  Serious: Yes (Other)
  Sender: FDA-Public Use
  Company Number: US-ABBOTT-06P-163-0350767-00

PATIENT
  Sex: Female

DRUGS (3)
  1. DEPAKOTE [Suspect]
     Indication: CONVULSION
  2. AVONEX [Suspect]
     Indication: MULTIPLE SCLEROSIS
  3. KEPPRA [Suspect]
     Indication: CONVULSION

REACTIONS (2)
  - ECTOPIC PREGNANCY [None]
  - MULTIPLE SCLEROSIS [None]
